FAERS Safety Report 23094001 (Version 1)
Quarter: 2023Q4

REPORT INFORMATION
  Report Type: Spontaneous
  Country: US (occurrence: US)
  Receive Date: 20231023
  Receipt Date: 20231023
  Transmission Date: 20240109
  Serious: Yes (Other)
  Sender: FDA-Public Use
  Company Number: US-NOVOPROD-1129159

PATIENT
  Age: 71 Year
  Sex: Male

DRUGS (1)
  1. NOVOLOG [Suspect]
     Active Substance: INSULIN ASPART
     Indication: Diabetes mellitus
     Dosage: 16-20 IU
     Route: 058
     Dates: start: 2021

REACTIONS (5)
  - Intra-ocular injection [Unknown]
  - Glycosylated haemoglobin increased [Recovering/Resolving]
  - Peripheral swelling [Recovered/Resolved]
  - Hypersensitivity [Recovered/Resolved]
  - Wrong technique in product usage process [Unknown]

NARRATIVE: CASE EVENT DATE: 20230701
